FAERS Safety Report 9549390 (Version 3)
Quarter: 2013Q4

REPORT INFORMATION
  Report Type: Spontaneous
  Country: JP (occurrence: None)
  Receive Date: 20130919
  Receipt Date: 20131015
  Transmission Date: 20140711
  Serious: Yes (Life-Threatening)
  Sender: FDA-Public Use
  Company Number: 1904111

PATIENT
  Age: 84 Year
  Sex: Male
  Weight: 45 kg

DRUGS (4)
  1. DEXMEDETOMIDINE HYDROCHLORIDE [Suspect]
     Indication: SEDATION
     Route: 041
     Dates: start: 20130620, end: 20130625
  2. SALINE [Concomitant]
  3. FLOMOXEF SODIUM [Concomitant]
  4. CLINDAMYCIN [Concomitant]

REACTIONS (13)
  - Rhythm idioventricular [None]
  - Electrocardiogram P wave abnormal [None]
  - Sinoatrial block [None]
  - Bradycardia [None]
  - Blood creatinine increased [None]
  - C-reactive protein increased [None]
  - Blood urea increased [None]
  - Blood albumin decreased [None]
  - Blood creatine phosphokinase decreased [None]
  - Blood lactate dehydrogenase decreased [None]
  - Vomiting [None]
  - Haemoglobin decreased [None]
  - Red blood cell count decreased [None]
